FAERS Safety Report 5780775-X (Version None)
Quarter: 2008Q2

REPORT INFORMATION
  Report Type: 
  Country: None (occurrence: None)
  Receive Date: 20080620
  Receipt Date: 20080606
  Transmission Date: 20081010
  Serious: No
  Sender: FDA-Public Use
  Company Number: US-BAYER-200825271NA

PATIENT
  Age: 24 Year
  Sex: Female
  Weight: 49 kg

DRUGS (2)
  1. YAZ [Suspect]
     Indication: CONTRACEPTION
     Route: 048
     Dates: start: 20080401, end: 20080514
  2. PLAN B [Suspect]
     Indication: POST COITAL CONTRACEPTION
     Dosage: UNIT DOSE: 0.75 MG
     Route: 048
     Dates: start: 20080515, end: 20080515

REACTIONS (4)
  - HEADACHE [None]
  - METRORRHAGIA [None]
  - NAUSEA [None]
  - WITHDRAWAL BLEEDING IRREGULAR [None]
